FAERS Safety Report 19624793 (Version 3)
Quarter: 2021Q3

REPORT INFORMATION
  Report Type: Spontaneous
  Country: US (occurrence: US)
  Receive Date: 20210729
  Receipt Date: 20210827
  Transmission Date: 20211014
  Serious: Yes (Other)
  Sender: FDA-Public Use
  Company Number: US-ALK-ABELLO A/S-2021AA003023

PATIENT

DRUGS (7)
  1. VITAMIN D                          /00107901/ [Concomitant]
     Active Substance: ERGOCALCIFEROL
  2. STAE BULK 503 (DERMATOPHAGOIDES PTERONYSSINUS) [Suspect]
     Active Substance: DERMATOPHAGOIDES PTERONYSSINUS
     Indication: PRODUCT USED FOR UNKNOWN INDICATION
     Dosage: UNK
     Dates: start: 20201001
  3. CLARITIN [Concomitant]
     Active Substance: LORATADINE
  4. TAE BULK 552 (EQUUS CABALLUS) [Suspect]
     Active Substance: EQUUS CABALLUS SKIN
     Indication: PRODUCT USED FOR UNKNOWN INDICATION
     Dosage: UNK
     Dates: start: 20201001
  5. STAE BULK 225 (PHLEUM PRATENSE) [Suspect]
     Active Substance: PHLEUM PRATENSE POLLEN
     Indication: PRODUCT USED FOR UNKNOWN INDICATION
     Dosage: UNK
     Dates: start: 20201001
  6. FLUTICASONE. [Concomitant]
     Active Substance: FLUTICASONE
  7. PEPCID [Concomitant]
     Active Substance: FAMOTIDINE

REACTIONS (1)
  - Anaphylactic reaction [Recovered/Resolved]

NARRATIVE: CASE EVENT DATE: 20210721
